APPROVED DRUG PRODUCT: PRIMAQUINE PHOSPHATE
Active Ingredient: PRIMAQUINE PHOSPHATE
Strength: EQ 15MG BASE
Dosage Form/Route: TABLET;ORAL
Application: A203924 | Product #001
Applicant: ALVOGEN INC
Approved: Feb 3, 2014 | RLD: No | RS: No | Type: DISCN